FAERS Safety Report 4970906-3 (Version None)
Quarter: 2006Q2

REPORT INFORMATION
  Report Type: 
  Country: None (occurrence: None)
  Receive Date: 20060411
  Receipt Date: 20060411
  Transmission Date: 20061013
  Serious: Yes (Hospitalization)
  Sender: FDA-Public Use
  Company Number: None

PATIENT
  Age: 37 Year
  Sex: Male
  Weight: 82.2 kg

DRUGS (12)
  1. CYTOXAN [Suspect]
     Indication: CHEMOTHERAPY
     Dosage: 2.05G
     Dates: start: 20060123, end: 20060124
  2. FLUDARABINE [Suspect]
     Indication: ACUTE MYELOID LEUKAEMIA
     Dosage: 72MG
     Dates: start: 20060118, end: 20060122
  3. CYCLOSPORINE [Concomitant]
  4. ACYCLOVIR [Concomitant]
  5. PREVACID [Concomitant]
  6. FLUCONAZOLE [Concomitant]
  7. PENTAMIDINE ISETHIONATE [Concomitant]
  8. REGLAN [Concomitant]
  9. AMBIEN [Concomitant]
  10. REMERON [Concomitant]
  11. ATGAM [Suspect]
     Dates: start: 20060123, end: 20060124
  12. UMBILICAL CORD BLOOD [Suspect]

REACTIONS (5)
  - BACTERAEMIA [None]
  - DYSPNOEA [None]
  - NAUSEA [None]
  - STEM CELL TRANSPLANT [None]
  - VOMITING [None]
